FAERS Safety Report 4429596-0 (Version None)
Quarter: 2004Q3

REPORT INFORMATION
  Report Type: 
  Country: None (occurrence: None)
  Receive Date: 20040816
  Receipt Date: 20040803
  Transmission Date: 20050211
  Serious: Yes (Disabling)
  Sender: FDA-Public Use
  Company Number: 2004UW16778

PATIENT
  Age: 70 Year
  Sex: Female

DRUGS (1)
  1. ATACAND [Suspect]
     Indication: HYPERTENSION
     Dosage: 16 MG QD; PO
     Route: 048
     Dates: start: 20040518

REACTIONS (3)
  - BACK PAIN [None]
  - BURNING SENSATION [None]
  - PARAESTHESIA [None]
